FAERS Safety Report 25351604 (Version 2)
Quarter: 2025Q4

REPORT INFORMATION
  Report Type: Report from Study
  Country: BR (occurrence: BR)
  Receive Date: 20250523
  Receipt Date: 20251001
  Transmission Date: 20260118
  Serious: Yes (Other)
  Sender: TAKEDA
  Company Number: BR-TAKEDA-2024TUS084327

PATIENT
  Sex: Female

DRUGS (3)
  1. HUMAN IMMUNOGLOBULIN G\HYALURONIDASE RECOMBINANT HUMAN [Suspect]
     Active Substance: HUMAN IMMUNOGLOBULIN G\HYALURONIDASE (HUMAN RECOMBINANT)
     Indication: Primary immunodeficiency syndrome
     Dosage: UNK
  2. HUMAN IMMUNOGLOBULIN G\HYALURONIDASE RECOMBINANT HUMAN [Suspect]
     Active Substance: HUMAN IMMUNOGLOBULIN G\HYALURONIDASE (HUMAN RECOMBINANT)
     Dosage: 40 GRAM, Q4WEEKS
  3. HUMAN IMMUNOGLOBULIN G\HYALURONIDASE RECOMBINANT HUMAN [Suspect]
     Active Substance: HUMAN IMMUNOGLOBULIN G\HYALURONIDASE (HUMAN RECOMBINANT)
     Dosage: 40 GRAM, Q4WEEKS
     Dates: start: 201901

REACTIONS (11)
  - Pneumonia [Recovering/Resolving]
  - Hypogammaglobulinaemia [Recovering/Resolving]
  - Cutaneous mucormycosis [Recovering/Resolving]
  - Dyspnoea exertional [Recovering/Resolving]
  - Sinusitis [Recovering/Resolving]
  - Gastroenteritis [Recovering/Resolving]
  - Herpes zoster [Recovering/Resolving]
  - Giardiasis [Recovering/Resolving]
  - Quality of life decreased [Recovering/Resolving]
  - Product dose omission issue [Unknown]
  - Asthenia [Recovering/Resolving]
